FAERS Safety Report 6575596-4 (Version None)
Quarter: 2010Q1

REPORT INFORMATION
  Report Type: 
  Country: None (occurrence: None)
  Receive Date: 20100209
  Receipt Date: 20100203
  Transmission Date: 20100710
  Serious: Yes (Death)
  Sender: FDA-Public Use
  Company Number: A0843352A

PATIENT
  Age: 72 Year
  Sex: Male

DRUGS (2)
  1. PROMACTA [Suspect]
     Indication: MYELODYSPLASTIC SYNDROME
     Dates: start: 20090902, end: 20090930
  2. CORTICOSTEROIDS [Concomitant]

REACTIONS (2)
  - ACUTE MYELOID LEUKAEMIA [None]
  - DRUG INEFFECTIVE [None]
